FAERS Safety Report 6569237-X (Version None)
Quarter: 2010Q1

REPORT INFORMATION
  Report Type: 
  Country: None (occurrence: None)
  Receive Date: 20100201
  Receipt Date: 20100201
  Transmission Date: 20100710
  Serious: Yes (Hospitalization)
  Sender: FDA-Public Use
  Company Number: None

PATIENT
  Age: 41 Year
  Sex: Male
  Weight: 71 kg

DRUGS (1)
  1. CYTARABINE [Suspect]
     Indication: LEUKAEMIA RECURRENT
     Dosage: 1500 MG/M2 OVER 3 HOURS EVERY 12 HOURS IV DRIP
     Route: 041
     Dates: start: 20100111, end: 20100112

REACTIONS (1)
  - RASH ERYTHEMATOUS [None]
